FAERS Safety Report 5354347-5 (Version None)
Quarter: 2007Q2

REPORT INFORMATION
  Report Type: 
  Country: None (occurrence: None)
  Receive Date: 20070521
  Receipt Date: 20070213
  Transmission Date: 20071010
  Serious: No
  Sender: FDA-Public Use
  Company Number: WAES 0702USA02335

PATIENT
  Sex: Female

DRUGS (1)
  1. JANUVIA [Suspect]
     Indication: DIABETES MELLITUS NON-INSULIN-DEPENDENT
     Dosage: 100MG, DAILY; PO
     Route: 048

REACTIONS (2)
  - DRY MOUTH [None]
  - WRONG TECHNIQUE IN DRUG USAGE PROCESS [None]
